FAERS Safety Report 17350001 (Version 2)
Quarter: 2020Q1

REPORT INFORMATION
  Report Type: Spontaneous
  Country: PL (occurrence: PL)
  Receive Date: 20200130
  Receipt Date: 20200228
  Transmission Date: 20200409
  Serious: Yes (Other)
  Sender: FDA-Public Use
  Company Number: PL-TEVA-2020-PL-1175172

PATIENT
  Age: 60 Year
  Sex: Female

DRUGS (2)
  1. IMATINIB. [Suspect]
     Active Substance: IMATINIB MESYLATE
     Indication: CHRONIC MYELOID LEUKAEMIA
     Dosage: 400 MILLIGRAM DAILY; TEMPORARILY BEING DISCONTINUED DURING THE INITIAL TREATMENT
     Route: 065
     Dates: start: 20110804
  2. IMATINIB. [Suspect]
     Active Substance: IMATINIB MESYLATE
     Dosage: 300 MILLIGRAM DAILY;
     Route: 065

REACTIONS (2)
  - Thrombocytopenia [Recovering/Resolving]
  - Drug resistance [Unknown]
